FAERS Safety Report 23396291 (Version 2)
Quarter: 2024Q1

REPORT INFORMATION
  Report Type: Spontaneous
  Country: US (occurrence: US)
  Receive Date: 20240112
  Receipt Date: 20240120
  Transmission Date: 20240410
  Serious: Yes (Hospitalization, Disabling, Other)
  Sender: FDA-Public Use
  Company Number: US-Accord-401292

PATIENT
  Age: 56 Year
  Sex: Female

DRUGS (22)
  1. ARIPIPRAZOLE [Suspect]
     Active Substance: ARIPIPRAZOLE
     Indication: Product used for unknown indication
     Dosage: STRENGTH: 5 MG
     Dates: start: 2022
  2. ESCITALOPRAM [Suspect]
     Active Substance: ESCITALOPRAM OXALATE
     Indication: Post-traumatic stress disorder
     Dosage: STRENGTH: 10 MG
     Dates: start: 2015, end: 2018
  3. FLUOXETINE [Suspect]
     Active Substance: FLUOXETINE HYDROCHLORIDE
     Indication: Product used for unknown indication
     Dates: start: 2022
  4. QUETIAPINE FUMARATE [Suspect]
     Active Substance: QUETIAPINE FUMARATE
     Indication: Sleep disorder
     Dosage: 2 TABLET AT NIGHT
     Dates: start: 2022, end: 2022
  5. PHENTERMINE HYDROCHLORIDE [Suspect]
     Active Substance: PHENTERMINE HYDROCHLORIDE
     Indication: Weight increased
     Dosage: STRENGTH: 20 MG, 1X/DAY
  6. ESCITALOPRAM OXALATE [Suspect]
     Active Substance: ESCITALOPRAM OXALATE
     Indication: Post-traumatic stress disorder
     Dosage: STRENGTH: 20 MG; 1X/DAY
     Dates: start: 2018
  7. GABAPENTIN [Suspect]
     Active Substance: GABAPENTIN
     Indication: Nerve injury
     Dosage: STRENGTH: 300 MG EVERY 8 HOUR; 3X/DAY
     Dates: start: 2015
  8. ZIPRASIDONE HYDROCHLORIDE [Suspect]
     Active Substance: ZIPRASIDONE HYDROCHLORIDE
     Indication: Product used for unknown indication
     Dosage: STRENGTH: 40 MG; 1X/DAY
  9. QUETIAPINE FUMARATE [Suspect]
     Active Substance: QUETIAPINE FUMARATE
     Indication: Sleep disorder
     Dosage: 2 TABLETS AT NIGHT
     Dates: start: 2022, end: 2022
  10. ARIPIPRAZOLE [Suspect]
     Active Substance: ARIPIPRAZOLE
     Indication: Product used for unknown indication
     Dosage: STRENGTH: 15 MG
     Dates: start: 2022
  11. DIVALPROEX SODIUM [Suspect]
     Active Substance: DIVALPROEX SODIUM
     Indication: Seizure prophylaxis
     Dosage: STRENGTH: 500 MG; 2X/DAY
     Route: 048
     Dates: start: 2022
  12. CYCLOBENZAPRINE [Concomitant]
     Active Substance: CYCLOBENZAPRINE
     Dates: start: 2014
  13. CYCLOBENZAPRINE [Concomitant]
     Active Substance: CYCLOBENZAPRINE
  14. CYCLOBENZAPRINE [Concomitant]
     Active Substance: CYCLOBENZAPRINE
  15. ESCITALOPRAM [Suspect]
     Active Substance: ESCITALOPRAM OXALATE
     Indication: Post-traumatic stress disorder
     Dosage: STRENGTH: 20 MG; 1X/DAY
     Dates: start: 2018
  16. ARIPIPRAZOLE [Suspect]
     Active Substance: ARIPIPRAZOLE
     Indication: Product used for unknown indication
     Dosage: STRENGTH: 5 MG
     Dates: start: 2022
  17. QUETIAPINE FUMARATE [Suspect]
     Active Substance: QUETIAPINE FUMARATE
     Indication: Product used for unknown indication
     Dosage: LOWER DOSE
     Dates: start: 2022
  18. QUETIAPINE FUMARATE [Suspect]
     Active Substance: QUETIAPINE FUMARATE
     Dosage: LOWER DOSE
     Dates: start: 2022
  19. GABAPENTIN [Suspect]
     Active Substance: GABAPENTIN
     Indication: Nerve injury
     Dosage: 2X/DAY
  20. GABAPENTIN [Suspect]
     Active Substance: GABAPENTIN
     Indication: Nerve injury
     Dosage: 1X/DAY
  21. ESCITALOPRAM OXALATE [Suspect]
     Active Substance: ESCITALOPRAM OXALATE
     Indication: Post-traumatic stress disorder
     Dosage: 1X/DAY
     Dates: start: 202206
  22. ESCITALOPRAM OXALATE [Suspect]
     Active Substance: ESCITALOPRAM OXALATE
     Indication: Post-traumatic stress disorder
     Dosage: REDUCED DOSE

REACTIONS (22)
  - Suicidal ideation [Recovered/Resolved]
  - Somnolence [Recovered/Resolved]
  - Fall [Unknown]
  - Memory impairment [Recovered/Resolved]
  - Paranoia [Recovered/Resolved]
  - Thinking abnormal [Recovered/Resolved]
  - Weight increased [Recovered/Resolved]
  - Prescribed overdose [Unknown]
  - Hallucination, auditory [Recovered/Resolved]
  - Suicide attempt [Unknown]
  - Head injury [Recovered/Resolved]
  - Performance status decreased [Recovered/Resolved]
  - Pain [Recovered/Resolved]
  - Cerebral disorder [Recovered/Resolved]
  - Mental disorder [Recovered/Resolved]
  - Cognitive disorder [Recovered/Resolved]
  - Injury [Recovered/Resolved]
  - Swelling [Recovered/Resolved]
  - Thirst [Recovered/Resolved]
  - Osteoarthritis [Recovered/Resolved]
  - Schizoaffective disorder [Recovered/Resolved]
  - Mania [Recovered/Resolved]

NARRATIVE: CASE EVENT DATE: 20220601
